FAERS Safety Report 16952131 (Version 2)
Quarter: 2019Q4

REPORT INFORMATION
  Report Type: Spontaneous
  Country: RU (occurrence: RU)
  Receive Date: 20191023
  Receipt Date: 20191104
  Transmission Date: 20200122
  Serious: Yes (Death, Hospitalization, Other)
  Sender: FDA-Public Use
  Company Number: RU-BAYER-2019-187858

PATIENT
  Sex: Female

DRUGS (5)
  1. SILDENAFIL. [Suspect]
     Active Substance: SILDENAFIL
  2. LEVOTHYROXINE. [Concomitant]
     Active Substance: LEVOTHYROXINE
     Dosage: 25 MG, UNK
  3. ADEMPAS [Suspect]
     Active Substance: RIOCIGUAT
     Indication: PULMONARY HYPERTENSION
     Dosage: 2.0 MG, TID
     Dates: start: 201902, end: 20191002
  4. DILTIAZEM. [Suspect]
     Active Substance: DILTIAZEM
  5. ADEMPAS [Suspect]
     Active Substance: RIOCIGUAT
     Indication: PULMONARY HYPERTENSION
     Dosage: 2.5 MG
     Dates: start: 201904

REACTIONS (5)
  - Syncope [Fatal]
  - Dyspnoea [None]
  - Product supply issue [None]
  - Cyanosis [Fatal]
  - Asthenia [None]

NARRATIVE: CASE EVENT DATE: 2019
